FAERS Safety Report 4420999-7 (Version None)
Quarter: 2004Q3

REPORT INFORMATION
  Report Type: 
  Country: None (occurrence: None)
  Receive Date: 20040809
  Receipt Date: 20040803
  Transmission Date: 20050211
  Serious: Yes (Other)
  Sender: FDA-Public Use
  Company Number: US-GLAXOSMITHKLINE-A0520751B

PATIENT
  Sex: Female

DRUGS (2)
  1. ZOFRAN [Suspect]
     Indication: HYPEREMESIS GRAVIDARUM
     Dosage: 4MG AS REQUIRED
     Dates: start: 20040101, end: 20040220
  2. MULTI-VITAMIN [Concomitant]

REACTIONS (4)
  - DRUG EXPOSURE DURING PREGNANCY [None]
  - EYE DISORDER [None]
  - PREMATURE BABY [None]
  - STRABISMUS [None]
